FAERS Safety Report 16689209 (Version 1)
Quarter: 2019Q3

REPORT INFORMATION
  Report Type: Spontaneous
  Country: US (occurrence: US)
  Receive Date: 20190809
  Receipt Date: 20190809
  Transmission Date: 20191004
  Serious: Yes (Hospitalization, Other)
  Sender: FDA-Public Use
  Company Number: US-ASTRAZENECA-2019SF12392

PATIENT
  Age: 28244 Day
  Sex: Female
  Weight: 61.2 kg

DRUGS (3)
  1. BRILINTA [Suspect]
     Active Substance: TICAGRELOR
     Indication: STENT PLACEMENT
     Route: 048
     Dates: start: 20190724
  2. ASPIRIN. [Concomitant]
     Active Substance: ASPIRIN
     Dosage: ONCE/SINGLE ADMINISTRATION
     Route: 048
  3. XARELTO [Concomitant]
     Active Substance: RIVAROXABAN
     Indication: ATRIAL FIBRILLATION
     Route: 048
     Dates: start: 20190726

REACTIONS (6)
  - Cerebrovascular accident [Unknown]
  - Product use issue [Not Recovered/Not Resolved]
  - Atrial fibrillation [Unknown]
  - Electrocardiogram abnormal [Unknown]
  - Confusional state [Unknown]
  - Cerebral infarction [Recovered/Resolved]

NARRATIVE: CASE EVENT DATE: 20190724
